FAERS Safety Report 10170194 (Version 1)
Quarter: 2014Q2

REPORT INFORMATION
  Report Type: Spontaneous
  Country: CA (occurrence: CA)
  Receive Date: 20140513
  Receipt Date: 20140513
  Transmission Date: 20141212
  Serious: Yes (Hospitalization, Other)
  Sender: FDA-Public Use
  Company Number: CA-WATSON-2014-09881

PATIENT
  Age: 80 Year
  Sex: Female

DRUGS (2)
  1. MORPHINE SULFATE (AELLC) [Suspect]
     Indication: BACK PAIN
     Dosage: 5 MG, PRN
     Route: 065
  2. HYDROMORPHONE HYDROCHLORIDE (WATSON LABORATORIES) [Suspect]
     Indication: BACK PAIN
     Dosage: UNKNOWN
     Route: 065

REACTIONS (1)
  - Colonic pseudo-obstruction [Recovered/Resolved]
